FAERS Safety Report 16404929 (Version 1)
Quarter: 2019Q2

REPORT INFORMATION
  Report Type: Spontaneous
  Country: IT (occurrence: IT)
  Receive Date: 20190607
  Receipt Date: 20190607
  Transmission Date: 20190711
  Serious: Yes (Hospitalization, Other)
  Sender: FDA-Public Use
  Company Number: IT-MYLANLABS-2019M1053098

PATIENT
  Age: 11 Year
  Sex: Female

DRUGS (3)
  1. PREDNISONE. [Suspect]
     Active Substance: PREDNISONE
     Indication: HENOCH-SCHONLEIN PURPURA
     Dosage: 1 MG/KG, QD
     Route: 048
  2. TEICOPLANIN [Concomitant]
     Active Substance: TEICOPLANIN
     Indication: INFECTION
     Dosage: UNK
  3. PREDNISONE. [Suspect]
     Active Substance: PREDNISONE
     Dosage: 0.5 MG/KG, QD
     Route: 048

REACTIONS (6)
  - Henoch-Schonlein purpura [Recovering/Resolving]
  - Purpura [Recovering/Resolving]
  - Blister [Recovering/Resolving]
  - Drug abuse [Unknown]
  - Rebound effect [Recovering/Resolving]
  - Abdominal pain [Recovering/Resolving]
